FAERS Safety Report 15283908 (Version 2)
Quarter: 2018Q4

REPORT INFORMATION
  Report Type: Report from Study
  Country: GB (occurrence: GB)
  Receive Date: 20180816
  Receipt Date: 20181128
  Transmission Date: 20190204
  Serious: Yes (Hospitalization, Other)
  Sender: FDA-Public Use
  Company Number: PHHY2018GB070404

PATIENT
  Age: 75 Year
  Sex: Male
  Weight: 75 kg

DRUGS (15)
  1. ENTRESTO [Suspect]
     Active Substance: SACUBITRIL\VALSARTAN
     Dosage: 50 MG, BID
     Route: 048
     Dates: start: 20180615
  2. WARFARIN [Concomitant]
     Active Substance: WARFARIN
     Dosage: 1 MG, UNK (AS PER ANTICOAGULANT BOOK)
     Route: 065
  3. EPLERENONE. [Concomitant]
     Active Substance: EPLERENONE
     Indication: PRODUCT USED FOR UNKNOWN INDICATION
     Dosage: 25 MG, QD
     Route: 065
  4. ISOSORBIDE MONONITRATE. [Concomitant]
     Active Substance: ISOSORBIDE MONONITRATE
     Indication: PRODUCT USED FOR UNKNOWN INDICATION
     Dosage: 20 MG, BID
     Route: 065
  5. ALENDRONIC ACID [Concomitant]
     Active Substance: ALENDRONIC ACID
     Indication: PRODUCT USED FOR UNKNOWN INDICATION
     Dosage: 70 MG, QW
     Route: 065
  6. FUROSEMIDE. [Concomitant]
     Active Substance: FUROSEMIDE
     Indication: PRODUCT USED FOR UNKNOWN INDICATION
     Dosage: 40 MG, QD2SDO
     Route: 065
  7. MIRTAZAPINE. [Concomitant]
     Active Substance: MIRTAZAPINE
     Indication: PRODUCT USED FOR UNKNOWN INDICATION
     Dosage: 15 MG, QD
     Route: 065
  8. ENTRESTO [Suspect]
     Active Substance: SACUBITRIL\VALSARTAN
     Indication: CARDIAC FAILURE
     Dosage: 50 MG (SACUBITRIL 24MG, VALSARTAN 26MG), UNK
     Route: 048
     Dates: start: 20180523
  9. ZOPICLONE [Concomitant]
     Active Substance: ZOPICLONE
     Indication: PRODUCT USED FOR UNKNOWN INDICATION
     Dosage: 3.75 MG, UNK (ONE TO BE TAKEN AT NIGHT, CAN TAKE ONE AFTER FEW HOURS IF REQUIRED)
     Route: 065
  10. WARFARIN [Concomitant]
     Active Substance: WARFARIN
     Indication: PRODUCT USED FOR UNKNOWN INDICATION
     Dosage: 5 MG, UNK (AS PER ANTICOAGULANT BOOK)
     Route: 065
  11. MACROGOL [Concomitant]
     Active Substance: POLYETHYLENE GLYCOLS
     Indication: PRODUCT USED FOR UNKNOWN INDICATION
     Dosage: 1-2 SACHETS DAILY
     Route: 065
  12. BISOPROLOL [Concomitant]
     Active Substance: BISOPROLOL
     Indication: PRODUCT USED FOR UNKNOWN INDICATION
     Dosage: 2.5 MG, BID
     Route: 065
  13. ENTRESTO [Suspect]
     Active Substance: SACUBITRIL\VALSARTAN
     Dosage: 100 MG (SACUBITRIL 49MG, VALSARTAN 51MG), UNK
     Route: 048
     Dates: start: 20180806
  14. PRAVASTATIN. [Concomitant]
     Active Substance: PRAVASTATIN
     Indication: PRODUCT USED FOR UNKNOWN INDICATION
     Dosage: 20 MG, QD
     Route: 065
  15. WARFARIN [Concomitant]
     Active Substance: WARFARIN
     Dosage: 3 MG, UNK (AS PER ANTICOAGULANT BOOK)
     Route: 065

REACTIONS (13)
  - Fracture [Unknown]
  - Sleep disorder [Unknown]
  - Chronic kidney disease [Unknown]
  - Acute kidney injury [Unknown]
  - Depressed mood [Unknown]
  - Anxiety [Unknown]
  - Ankle fracture [Unknown]
  - Pneumonia streptococcal [Unknown]
  - Cardiac failure [Unknown]
  - Vision blurred [Not Recovered/Not Resolved]
  - Depression [Unknown]
  - Fall [Unknown]
  - Cardiac murmur [Unknown]

NARRATIVE: CASE EVENT DATE: 20180523
